FAERS Safety Report 9333202 (Version 3)
Quarter: 2013Q3

REPORT INFORMATION
  Report Type: Spontaneous
  Country: JP (occurrence: None)
  Receive Date: 20130604
  Receipt Date: 20130822
  Transmission Date: 20140515
  Serious: Yes (Death, Hospitalization, Other)
  Sender: FDA-Public Use
  Company Number: ADR-2013-00915

PATIENT
  Age: 48 Year
  Sex: Female

DRUGS (1)
  1. GABALON [Suspect]

REACTIONS (7)
  - Pneumonia [None]
  - Pancytopenia [None]
  - Acute respiratory distress syndrome [None]
  - Blood pressure decreased [None]
  - Muscle spasms [None]
  - Cardiac arrest [None]
  - Drug ineffective [None]
